FAERS Safety Report 24685874 (Version 1)
Quarter: 2024Q4

REPORT INFORMATION
  Report Type: Report from Study
  Country: IN (occurrence: IN)
  Receive Date: 20241202
  Receipt Date: 20241202
  Transmission Date: 20250114
  Serious: Yes (Other)
  Sender: ROCHE
  Company Number: IN-002147023-NVSC2024IN227255

PATIENT
  Age: 61 Year
  Sex: Female
  Weight: 50 kg

DRUGS (1)
  1. RANIBIZUMAB [Suspect]
     Active Substance: RANIBIZUMAB
     Indication: Diabetic retinopathy
     Dosage: 0.5 MG
     Route: 050
     Dates: start: 20240425, end: 20240829

REACTIONS (1)
  - Blindness unilateral [Unknown]

NARRATIVE: CASE EVENT DATE: 20241001
